FAERS Safety Report 7412799-0 (Version None)
Quarter: 2011Q2

REPORT INFORMATION
  Report Type: 
  Country: None (occurrence: None)
  Receive Date: 20110413
  Receipt Date: 20110405
  Transmission Date: 20111010
  Serious: Yes (Hospitalization)
  Sender: FDA-Public Use
  Company Number: A0922696A

PATIENT
  Sex: Male

DRUGS (7)
  1. AVANDIA [Suspect]
     Route: 048
     Dates: start: 19990701, end: 20090101
  2. PROGRAF [Concomitant]
  3. PREDNISONE [Concomitant]
  4. STATINS [Concomitant]
  5. CELLCEPT [Concomitant]
  6. LISINOPRIL [Concomitant]
  7. STEROIDS [Concomitant]

REACTIONS (3)
  - DISABILITY [None]
  - FABRY'S DISEASE [None]
  - CEREBROVASCULAR ACCIDENT [None]
